FAERS Safety Report 6245454-3 (Version None)
Quarter: 2009Q2

REPORT INFORMATION
  Report Type: 
  Country: None (occurrence: None)
  Receive Date: 20090625
  Receipt Date: 20090616
  Transmission Date: 20091009
  Serious: Yes (Other)
  Sender: FDA-Public Use
  Company Number: PHHY2009TR23822

PATIENT
  Age: 57 Year
  Sex: Male

DRUGS (3)
  1. VALSARTAN [Suspect]
  2. FLUTICASONE PROPIONATE [Concomitant]
     Route: 061
  3. ANTIHYPERTENSIVE DRUGS [Concomitant]

REACTIONS (5)
  - LICHENOID KERATOSIS [None]
  - RASH PAPULAR [None]
  - RASH PRURITIC [None]
  - SKIN DISORDER [None]
  - SKIN HYPERPIGMENTATION [None]
